FAERS Safety Report 10244471 (Version 1)
Quarter: 2014Q1

REPORT INFORMATION
  Report Type: Spontaneous
  Country: US (occurrence: None)
  Receive Date: 20140306
  Receipt Date: 20140306
  Transmission Date: 20141002
  Serious: Yes (Hospitalization)
  Sender: FDA-Public Use
  Company Number: 163-21880-13022973

PATIENT
  Age: 63 Year
  Sex: Female

DRUGS (11)
  1. REVLIMID (LENALIDOMIDE) (25 MILLIGRAM, CAPSULES) [Suspect]
     Indication: PLASMA CELL MYELOMA
     Route: 048
     Dates: start: 201110
  2. AMOXICILLIN (CAPSULES) [Concomitant]
  3. LORAZEPAM (TABLETS) [Concomitant]
  4. CHERATUSSIN (CHERATUSSIN COUGH SYRUP) (SYRUP) [Concomitant]
  5. ONDANSETRON (TABLETS) [Concomitant]
  6. LEVOTHYROXIN (LEVOTHYROXINE SODIUM) (TABLETS) [Concomitant]
  7. TAMIFLU (OSELTAMIVIR) (CAPSULES) [Concomitant]
  8. MEGESTROL ACETATE (TABLETS) [Concomitant]
  9. DEXAMETHASONE (TABLETS) [Concomitant]
  10. CITRACAL + VITAMIN D (CITRACAL + D ) (TABLETS) [Concomitant]
  11. CENTRUM (TABLETS) [Concomitant]

REACTIONS (2)
  - Influenza [None]
  - White blood cell count decreased [None]
